FAERS Safety Report 13345479 (Version 1)
Quarter: 2017Q1

REPORT INFORMATION
  Report Type: Report from Study
  Country: IE (occurrence: IE)
  Receive Date: 20170317
  Receipt Date: 20170317
  Transmission Date: 20170428
  Serious: Yes (Other)
  Sender: FDA-Public Use
  Company Number: IE-AMGEN-IRLSL2017039553

PATIENT
  Age: 67 Year
  Sex: Male

DRUGS (17)
  1. CARDICOR [Concomitant]
     Active Substance: BISOPROLOL
     Dosage: 1.25 MG, QD (ONCE DAILY)
  2. KLACID [Concomitant]
     Active Substance: CLARITHROMYCIN
     Dosage: 500 MG, BID (B.D)
     Route: 050
  3. KIN [Concomitant]
     Dosage: 10 ML, QID
     Route: 050
  4. MOTILIUM [Concomitant]
     Active Substance: DOMPERIDONE
     Dosage: 10 MG, AS NECESSARY (PRN)
     Route: 050
  5. TRAMADOL. [Concomitant]
     Active Substance: TRAMADOL
     Dosage: 50 MG, AS NECESSARY (PRN)
     Route: 050
  6. DEX [Concomitant]
     Active Substance: DEXAMETHASONE
     Dosage: 8 MG, Q2WK (POST CHEMOTHERAPY)
     Route: 050
  7. LANSOPRAZOLE. [Concomitant]
     Active Substance: LANSOPRAZOLE
     Dosage: 30 MG, QD (ONCE DAILY)
     Route: 050
  8. PREDNISOLONE. [Concomitant]
     Active Substance: PREDNISOLONE
     Dosage: 5 MG, QD (ONCE DAILY)
     Route: 050
  9. ASPIRIN. [Concomitant]
     Active Substance: ASPIRIN
     Dosage: 75 MG, QD (ONCE DAILY)
  10. EXPUTEX [Concomitant]
     Dosage: 10 ML, UNK
     Route: 050
  11. SERETIDE [Concomitant]
     Active Substance: FLUTICASONE PROPIONATE\SALMETEROL XINAFOATE
     Dosage: 250 MG, BID (B.D)
     Route: 050
  12. VALOID [Concomitant]
     Active Substance: CYCLIZINE HYDROCHLORIDE
     Dosage: 50 MG, AS NECESSARY (PRN)
     Route: 050
  13. MYCOSTATIN [Concomitant]
     Active Substance: NYSTATIN
     Dosage: 1 ML, QID
     Route: 050
  14. AUGMENTIN [Concomitant]
     Active Substance: AMOXICILLIN\CLAVULANATE POTASSIUM
     Dosage: 625 MG, TID (T.D.S)
     Route: 050
  15. NEULASTA [Suspect]
     Active Substance: PEGFILGRASTIM
     Indication: PRODUCT USED FOR UNKNOWN INDICATION
     Dosage: 6 MG, Q2WK (POST CHEMOTHERAPY 2 WEEKLY CYCLE)
     Route: 058
  16. PANTOPRAZOLE [Concomitant]
     Active Substance: PANTOPRAZOLE SODIUM
     Dosage: 40 MG, QD (ONCE DAILY)
     Route: 050
  17. LIPITOR [Concomitant]
     Active Substance: ATORVASTATIN CALCIUM
     Dosage: 40 MG, QHS

REACTIONS (2)
  - Flushing [Recovering/Resolving]
  - Pneumonia [Recovering/Resolving]

NARRATIVE: CASE EVENT DATE: 20170218
